FAERS Safety Report 18630134 (Version 8)
Quarter: 2021Q2

REPORT INFORMATION
  Report Type: Spontaneous
  Country: US (occurrence: US)
  Receive Date: 20201217
  Receipt Date: 20210519
  Transmission Date: 20210717
  Serious: Yes (Other)
  Sender: FDA-Public Use
  Company Number: US-PFIZER INC-2020497272

PATIENT
  Age: 74 Year
  Sex: Female

DRUGS (4)
  1. IBRANCE [Suspect]
     Active Substance: PALBOCICLIB
     Dosage: 100 MG
     Dates: start: 20201207
  2. IBRANCE [Suspect]
     Active Substance: PALBOCICLIB
     Dosage: 100 MG
     Dates: start: 20201109
  3. IBRANCE [Suspect]
     Active Substance: PALBOCICLIB
     Dosage: 125 MG
     Dates: start: 20201107
  4. IBRANCE [Suspect]
     Active Substance: PALBOCICLIB
     Dosage: 100 MG
     Dates: start: 20200511

REACTIONS (16)
  - Fatigue [Recovered/Resolved]
  - Renal disorder [Recovering/Resolving]
  - Urinary tract infection [Unknown]
  - Decreased appetite [Unknown]
  - Aplastic anaemia [Unknown]
  - Wound [Unknown]
  - Diarrhoea [Recovered/Resolved]
  - Nausea [Unknown]
  - Abdominal pain [Unknown]
  - Blood count abnormal [Unknown]
  - Ejection fraction decreased [Unknown]
  - Diabetes mellitus [Recovering/Resolving]
  - White blood cell count decreased [Unknown]
  - Thirst decreased [Unknown]
  - Product dose omission issue [Unknown]
  - Dry throat [Unknown]
